FAERS Safety Report 7632719-3 (Version None)
Quarter: 2011Q3

REPORT INFORMATION
  Report Type: 
  Country: None (occurrence: None)
  Receive Date: 20110725
  Receipt Date: 20110105
  Transmission Date: 20111222
  Serious: No
  Sender: FDA-Public Use
  Company Number: US-BRISTOL-MYERS SQUIBB COMPANY-15426893

PATIENT
  Age: 76 Year
  Sex: Female
  Weight: 98 kg

DRUGS (7)
  1. COUMADIN [Suspect]
  2. TORSEMIDE [Concomitant]
  3. CALCIUM CARBONATE [Concomitant]
  4. FOSINOPRIL SODIUM [Concomitant]
  5. SPIRONOLACTONE [Concomitant]
  6. DIGOXIN [Concomitant]
  7. MULTI-VITAMIN [Concomitant]

REACTIONS (1)
  - INTERNATIONAL NORMALISED RATIO FLUCTUATION [None]
